FAERS Safety Report 7420734-4 (Version None)
Quarter: 2011Q2

REPORT INFORMATION
  Report Type: 
  Country: None (occurrence: None)
  Receive Date: 20110418
  Receipt Date: 20110412
  Transmission Date: 20111010
  Serious: Yes (Hospitalization, Other)
  Sender: FDA-Public Use
  Company Number: FI-BRISTOL-MYERS SQUIBB COMPANY-15672975

PATIENT
  Age: 15 Year
  Sex: Male

DRUGS (1)
  1. ABILIFY [Suspect]
     Route: 048
     Dates: start: 20110301

REACTIONS (2)
  - NEUROLEPTIC MALIGNANT SYNDROME [None]
  - LOSS OF CONSCIOUSNESS [None]
